FAERS Safety Report 18695969 (Version 1)
Quarter: 2021Q1

REPORT INFORMATION
  Report Type: Spontaneous
  Country: US (occurrence: US)
  Receive Date: 20210104
  Receipt Date: 20210104
  Transmission Date: 20210419
  Serious: No
  Sender: FDA-Public Use
  Company Number: US-CELGENEUS-USA-20201208837

PATIENT
  Sex: Female
  Weight: 100.29 kg

DRUGS (27)
  1. OXYCODONE [Concomitant]
     Active Substance: OXYCODONE
     Dosage: 3 MILLIGRAM
     Route: 048
     Dates: start: 20190808
  2. PREGABALIN. [Concomitant]
     Active Substance: PREGABALIN
     Indication: PLASMA CELL MYELOMA
     Dosage: 4 MILLIGRAM
     Route: 048
     Dates: start: 201905
  3. POMALYST [Suspect]
     Active Substance: POMALIDOMIDE
     Dosage: 3 MILLIGRAM
     Route: 048
     Dates: start: 20190808
  4. CITRUCEL [Concomitant]
     Active Substance: METHYLCELLULOSE (4000 MPA.S)
     Dosage: 3 MILLIGRAM
     Route: 048
     Dates: start: 201907
  5. PROBIOTIC [Concomitant]
     Active Substance: PROBIOTICS NOS
     Dosage: 3 MILLIGRAM
     Route: 048
     Dates: start: 201907
  6. APAP [Concomitant]
     Active Substance: ACETAMINOPHEN
     Dosage: 3 MILLIGRAM
     Route: 048
     Dates: start: 201907
  7. ASPIRIN. [Concomitant]
     Active Substance: ASPIRIN
     Dosage: 3 MILLIGRAM
     Route: 048
     Dates: start: 20190808
  8. POMALYST [Suspect]
     Active Substance: POMALIDOMIDE
     Dosage: 3 MILLIGRAM
     Route: 048
     Dates: start: 201907
  9. DEXAMETHASONE. [Concomitant]
     Active Substance: DEXAMETHASONE
     Indication: PLASMA CELL MYELOMA
     Dosage: 4 MILLIGRAM
     Route: 048
     Dates: start: 201905
  10. PREGABALIN. [Concomitant]
     Active Substance: PREGABALIN
     Dosage: 3 MILLIGRAM
     Route: 048
     Dates: start: 201907
  11. PREGABALIN. [Concomitant]
     Active Substance: PREGABALIN
     Dosage: 3 MILLIGRAM
     Route: 048
     Dates: start: 20190808
  12. APAP [Concomitant]
     Active Substance: ACETAMINOPHEN
     Indication: PLASMA CELL MYELOMA
     Dosage: 4 MILLIGRAM
     Route: 048
     Dates: start: 201905
  13. CITRUCEL [Concomitant]
     Active Substance: METHYLCELLULOSE (4000 MPA.S)
     Indication: PLASMA CELL MYELOMA
     Dosage: 4 MILLIGRAM
     Route: 048
     Dates: start: 201905
  14. CITRUCEL [Concomitant]
     Active Substance: METHYLCELLULOSE (4000 MPA.S)
     Dosage: 3 MILLIGRAM
     Route: 048
     Dates: start: 20190808
  15. DEXAMETHASONE. [Concomitant]
     Active Substance: DEXAMETHASONE
     Dosage: 3 MILLIGRAM
     Route: 048
     Dates: start: 201907
  16. DIPHENOXYLATE/ATROPINE [Concomitant]
     Active Substance: ATROPINE\DIPHENOXYLATE
     Indication: PLASMA CELL MYELOMA
     Dosage: 4 MILLIGRAM
     Route: 048
     Dates: start: 201905
  17. POMALYST [Suspect]
     Active Substance: POMALIDOMIDE
     Indication: PLASMA CELL MYELOMA
     Dosage: 4 MILLIGRAM
     Route: 048
     Dates: start: 201905
  18. ASPIRIN. [Concomitant]
     Active Substance: ASPIRIN
     Indication: PLASMA CELL MYELOMA
     Dosage: 4 MILLIGRAM
     Route: 048
     Dates: start: 201905
  19. APAP [Concomitant]
     Active Substance: ACETAMINOPHEN
     Dosage: 3 MILLIGRAM
     Route: 048
     Dates: start: 20190808
  20. ASPIRIN. [Concomitant]
     Active Substance: ASPIRIN
     Dosage: 3 MILLIGRAM
     Route: 048
     Dates: start: 201907
  21. DEXAMETHASONE. [Concomitant]
     Active Substance: DEXAMETHASONE
     Dosage: 3 MILLIGRAM
     Route: 048
     Dates: start: 20190808
  22. DIPHENOXYLATE/ATROPINE [Concomitant]
     Active Substance: ATROPINE\DIPHENOXYLATE
     Dosage: 3 MILLIGRAM
     Route: 048
     Dates: start: 201907
  23. DIPHENOXYLATE/ATROPINE [Concomitant]
     Active Substance: ATROPINE\DIPHENOXYLATE
     Dosage: 3 MILLIGRAM
     Route: 048
     Dates: start: 20190808
  24. OXYCODONE [Concomitant]
     Active Substance: OXYCODONE
     Indication: PLASMA CELL MYELOMA
     Dosage: 4 MILLIGRAM
     Route: 048
     Dates: start: 201905
  25. OXYCODONE [Concomitant]
     Active Substance: OXYCODONE
     Dosage: 3 MILLIGRAM
     Route: 048
     Dates: start: 201907
  26. PROBIOTIC [Concomitant]
     Active Substance: PROBIOTICS NOS
     Indication: PLASMA CELL MYELOMA
     Dosage: 4 MILLIGRAM
     Route: 048
     Dates: start: 201905
  27. PROBIOTIC [Concomitant]
     Active Substance: PROBIOTICS NOS
     Dosage: 3 MILLIGRAM
     Route: 048
     Dates: start: 20190808

REACTIONS (1)
  - Full blood count decreased [Unknown]
